FAERS Safety Report 5667041-8 (Version None)
Quarter: 2008Q1

REPORT INFORMATION
  Report Type: 
  Country: None (occurrence: None)
  Receive Date: 20080315
  Receipt Date: 20080109
  Transmission Date: 20080703
  Serious: No
  Sender: FDA-Public Use
  Company Number: US-ABBOTT-08P-163-0433329-00

PATIENT
  Sex: Female
  Weight: 79.45 kg

DRUGS (7)
  1. HUMIRA [Suspect]
     Indication: ANKYLOSING SPONDYLITIS
     Route: 058
     Dates: start: 20071121
  2. ATENOLOL [Concomitant]
     Indication: HYPERTENSION
     Route: 048
  3. FLUTICASONE PROPIONATE [Concomitant]
     Indication: ASTHMA
     Route: 048
  4. MONTELUKAST SODIUM [Concomitant]
     Indication: ASTHMA
     Route: 048
  5. BUDESONIDE [Concomitant]
     Indication: ASTHMA
     Route: 048
  6. SALBUTAMOL SULFATE [Concomitant]
     Indication: ASTHMA
     Dosage: NEBULIZATION
  7. SALBUTAMOL SULFATE [Concomitant]
     Route: 055

REACTIONS (1)
  - SINUSITIS [None]
